FAERS Safety Report 25101361 (Version 2)
Quarter: 2025Q1

REPORT INFORMATION
  Report Type: Spontaneous
  Country: DE (occurrence: DE)
  Receive Date: 20250320
  Receipt Date: 20250327
  Transmission Date: 20250408
  Serious: Yes (Other)
  Sender: OTSUKA
  Company Number: None

PATIENT
  Age: 18 Year
  Sex: Female
  Weight: 115 kg

DRUGS (3)
  1. ARIPIPRAZOLE [Suspect]
     Active Substance: ARIPIPRAZOLE
     Indication: Family stress
     Route: 065
     Dates: start: 20150801, end: 20250307
  2. DIAZEPAM [Suspect]
     Active Substance: DIAZEPAM
     Indication: Family stress
     Route: 065
     Dates: start: 20150801, end: 20250307
  3. OLANZAPINE [Suspect]
     Active Substance: OLANZAPINE
     Indication: Family stress
     Route: 065
     Dates: start: 20150801, end: 20250307

REACTIONS (1)
  - Blindness [Recovered/Resolved]

NARRATIVE: CASE EVENT DATE: 20150801
